FAERS Safety Report 11182692 (Version 1)
Quarter: 2015Q2

REPORT INFORMATION
  Report Type: Spontaneous
  Country: GB (occurrence: GB)
  Receive Date: 20150611
  Receipt Date: 20150611
  Transmission Date: 20150821
  Serious: Yes (Hospitalization)
  Sender: FDA-Public Use
  Company Number: GB-UCBSA-2015018682

PATIENT
  Sex: Female

DRUGS (1)
  1. KEPPRA [Suspect]
     Active Substance: LEVETIRACETAM
     Indication: EPILEPSY
     Dosage: 1250 MG, 2X/DAY (BID)
     Dates: start: 2015

REACTIONS (3)
  - Hospitalisation [Unknown]
  - Seizure [Unknown]
  - Mental disorder [Unknown]

NARRATIVE: CASE EVENT DATE: 2015
